FAERS Safety Report 7739922-2 (Version None)
Quarter: 2011Q3

REPORT INFORMATION
  Report Type: 
  Country: None (occurrence: None)
  Receive Date: 20110906
  Receipt Date: 20110824
  Transmission Date: 20111222
  Serious: Yes (Hospitalization)
  Sender: FDA-Public Use
  Company Number: 2011MA012841

PATIENT
  Age: 27 Year
  Sex: Male

DRUGS (1)
  1. VENLAFAXINE HYDROCHLORIDE [Suspect]
     Indication: DEPRESSION
     Dosage: 150 MG;QD;PO
     Route: 048
     Dates: start: 20110622

REACTIONS (20)
  - MUSCLE SPASMS [None]
  - VISUAL IMPAIRMENT [None]
  - PHOTOPHOBIA [None]
  - TREMOR [None]
  - TUNNEL VISION [None]
  - VOMITING [None]
  - NAUSEA [None]
  - RESTLESSNESS [None]
  - HALLUCINATION, VISUAL [None]
  - HYPERHIDROSIS [None]
  - DYSKINESIA [None]
  - SLEEP PARALYSIS [None]
  - INSOMNIA [None]
  - PARAESTHESIA [None]
  - HALLUCINATION [None]
  - PRESYNCOPE [None]
  - MALAISE [None]
  - NIGHTMARE [None]
  - SPEECH DISORDER [None]
  - ABDOMINAL PAIN [None]
